FAERS Safety Report 6381183-3 (Version None)
Quarter: 2009Q3

REPORT INFORMATION
  Report Type: 
  Country: None (occurrence: None)
  Receive Date: 20090929
  Receipt Date: 20090813
  Transmission Date: 20100115
  Serious: No
  Sender: FDA-Public Use
  Company Number: US-TYCO HEALTHCARE/MALLINCKRODT-T200901540

PATIENT
  Sex: Male

DRUGS (2)
  1. TECHNETIUM TC 99M SESTAMIBI [Suspect]
     Dosage: UNK
     Dates: start: 20090811, end: 20090811
  2. ULTRA-TECHNEKOW [Suspect]
     Dosage: UNK
     Dates: start: 20090812, end: 20090812

REACTIONS (1)
  - ACCIDENTAL NEEDLE STICK [None]
